FAERS Safety Report 5755671-4 (Version None)
Quarter: 2008Q2

REPORT INFORMATION
  Report Type: 
  Country: None (occurrence: None)
  Receive Date: 20080528
  Receipt Date: 20080520
  Transmission Date: 20081010
  Serious: Yes (Life-Threatening)
  Sender: FDA-Public Use
  Company Number: CERZ-1000225

PATIENT
  Age: 21 Month
  Sex: Female
  Weight: 7 kg

DRUGS (1)
  1. CEREZYME [Suspect]
     Indication: GAUCHER'S DISEASE
     Dosage: 110 U, Q2W, INTRAVENOUS
     Route: 042
     Dates: start: 20071101

REACTIONS (6)
  - CARDIAC FAILURE [None]
  - CARDIO-RESPIRATORY ARREST [None]
  - CATHETER RELATED INFECTION [None]
  - ENDOTOXIC SHOCK [None]
  - RESPIRATORY FAILURE [None]
  - SEPSIS [None]
